FAERS Safety Report 7527087-1 (Version None)
Quarter: 2011Q2

REPORT INFORMATION
  Report Type: 
  Country: None (occurrence: None)
  Receive Date: 20110606
  Receipt Date: 20110525
  Transmission Date: 20111010
  Serious: Yes (Death, Life-Threatening)
  Sender: FDA-Public Use
  Company Number: ES-AMGEN-ESPSP2011022331

PATIENT
  Age: 51 Year
  Sex: Male

DRUGS (11)
  1. AMLODIPINE [Concomitant]
     Dosage: UNK
     Route: 048
  2. CITALOPRAM [Concomitant]
     Route: 048
  3. CLOPIDOGREL [Concomitant]
     Route: 048
  4. FUROSEMIDE [Concomitant]
     Dosage: UNK
     Route: 048
  5. ENBREL [Suspect]
     Indication: PSORIASIS
     Dosage: UNK
  6. LOBIVON [Concomitant]
     Dosage: UNK
     Route: 048
  7. VALSARTAN [Concomitant]
     Dosage: UNK
     Route: 048
  8. ATORVASTATIN [Concomitant]
     Dosage: UNK
     Route: 048
  9. ALPRAZOLAM [Concomitant]
     Route: 048
  10. EZETIMIBE [Concomitant]
     Route: 048
  11. ALLOPURINOL [Concomitant]
     Dosage: UNK
     Route: 048

REACTIONS (2)
  - CARDIAC ARREST [None]
  - ACUTE MYOCARDIAL INFARCTION [None]
